FAERS Safety Report 13263592 (Version 1)
Quarter: 2017Q1

REPORT INFORMATION
  Report Type: Spontaneous
  Country: US (occurrence: US)
  Receive Date: 20170221
  Receipt Date: 20170221
  Transmission Date: 20170428
  Serious: Yes (Hospitalization)
  Sender: FDA-Public Use
  Company Number: None

PATIENT
  Age: 87 Year
  Sex: Female
  Weight: 58 kg

DRUGS (6)
  1. RUXOLITINIB [Suspect]
     Active Substance: RUXOLITINIB
     Indication: PRODUCT USED FOR UNKNOWN INDICATION
     Route: 048
     Dates: start: 20160205, end: 20161209
  2. BISOPROLOL FUMARNATE [Concomitant]
  3. RUXOLITINIB [Suspect]
     Active Substance: RUXOLITINIB
     Indication: PRODUCT USED FOR UNKNOWN INDICATION
     Route: 048
     Dates: start: 20170203
  4. ALLOPURINOL. [Concomitant]
     Active Substance: ALLOPURINOL
  5. RAMIPRIL. [Concomitant]
     Active Substance: RAMIPRIL
  6. FENOFIBRATE. [Concomitant]
     Active Substance: FENOFIBRATE

REACTIONS (2)
  - Hypoglycaemia [None]
  - Chest pain [None]

NARRATIVE: CASE EVENT DATE: 20170217
